FAERS Safety Report 5786138-5 (Version None)
Quarter: 2008Q2

REPORT INFORMATION
  Report Type: 
  Country: None (occurrence: None)
  Receive Date: 20080624
  Receipt Date: 20080617
  Transmission Date: 20081010
  Serious: Yes (Hospitalization, Congenital Anomaly)
  Sender: FDA-Public Use
  Company Number: A0680203A

PATIENT
  Sex: Male
  Weight: 3.8 kg

DRUGS (6)
  1. PAXIL [Suspect]
     Indication: DRUG USE FOR UNKNOWN INDICATION
     Dosage: 20MG PER DAY
     Dates: start: 20030401, end: 20061201
  2. PAROXETINE HCL [Suspect]
     Indication: DRUG USE FOR UNKNOWN INDICATION
     Dosage: 20MG PER DAY
     Dates: start: 20040123
  3. NU-AMOXI [Concomitant]
     Dosage: 500MG THREE TIMES PER DAY
     Dates: start: 20031127
  4. DICLECTIN [Concomitant]
     Dates: start: 20031217
  5. ERYC [Concomitant]
     Dosage: 333MG THREE TIMES PER DAY
     Dates: start: 20040112
  6. VITAMIN B-12 [Concomitant]
     Dates: start: 20040419

REACTIONS (4)
  - CONGENITAL ANOMALY [None]
  - CRANIOSYNOSTOSIS [None]
  - DRUG EXPOSURE DURING PREGNANCY [None]
  - DYSPNOEA [None]
